FAERS Safety Report 7337524-3 (Version None)
Quarter: 2011Q1

REPORT INFORMATION
  Report Type: 
  Country: None (occurrence: None)
  Receive Date: 20110308
  Receipt Date: 20091031
  Transmission Date: 20110831
  Serious: Yes (Hospitalization, Other)
  Sender: FDA-Public Use
  Company Number: US-BAYER-200937833NA

PATIENT
  Sex: Male
  Weight: 88.435 kg

DRUGS (33)
  1. ACETYLSALICYLIC ACID (} 100 MG, FAST RELEASE) [Concomitant]
     Route: 048
  2. LISINOPRIL [Concomitant]
     Dosage: 10 MG, UNK
     Route: 048
  3. LISINOPRIL [Concomitant]
     Dosage: 20 MG, UNK
     Route: 048
  4. CARDIZEM [Concomitant]
     Dosage: 10 MG, Q1HR
     Dates: start: 20050505, end: 20050505
  5. CARDIZEM [Concomitant]
     Dosage: 20 MG, Q1HR
     Dates: start: 20050505, end: 20050505
  6. PROTAMINE SULFATE [Concomitant]
     Dosage: 600 MG, UNK
     Route: 042
     Dates: start: 20050506, end: 20050506
  7. PROTAMINE SULFATE [Concomitant]
     Dosage: 100 MG, UNK
     Route: 042
     Dates: start: 20050506
  8. TRASYLOL [Suspect]
     Indication: CORONARY ARTERY BYPASS
     Dosage: 25 ML PER HOUR, UNK
     Route: 042
     Dates: start: 20050506, end: 20050506
  9. VISIPAQUE [Suspect]
     Indication: CATHETERISATION CARDIAC
     Dosage: UNK
     Dates: start: 20050505
  10. NORVASC [Concomitant]
     Dosage: 10 MG, UNK
     Route: 048
  11. ETOMIDATE [Concomitant]
     Dosage: 20 MG, UNK
     Route: 042
     Dates: start: 20050506
  12. NITROGLYCERIN [Concomitant]
     Dosage: 40 MCG/ML, Q1MIN
     Route: 042
     Dates: start: 20050505, end: 20050505
  13. NITROGLYCERIN [Concomitant]
     Dosage: 3 ML, UNK
     Route: 042
     Dates: start: 20050506, end: 20050506
  14. FENTANYL [Concomitant]
     Dosage: 20 MCG/ML, UNK
     Route: 042
     Dates: start: 20050506
  15. HEPARIN [Concomitant]
     Dosage: 5000 U, UNK
     Route: 042
     Dates: start: 20050505
  16. HEPARIN [Concomitant]
     Dosage: 41000 U, UNK
     Route: 042
     Dates: start: 20050506, end: 20050506
  17. AMIODARONE [Concomitant]
     Dosage: 17 ML, Q1HR
     Route: 042
     Dates: start: 20050506, end: 20050506
  18. LASIX [Concomitant]
     Dosage: 40 MG, UNK
     Route: 042
  19. ALBUMIN (HUMAN) [Concomitant]
     Dosage: 50 G, UNK
     Route: 042
     Dates: start: 20050506, end: 20050506
  20. PAVULON [Concomitant]
     Dosage: UNK
     Route: 042
     Dates: start: 20050506, end: 20050506
  21. TRASYLOL [Suspect]
     Indication: CARDIAC ABLATION
     Dosage: 1 ML, ONCE
     Route: 042
     Dates: start: 20050506, end: 20050506
  22. DIATRIZOATE SODIUM W/MEGLUMINE DIATRIZOATE [Suspect]
     Indication: CATHETERISATION CARDIAC
     Dosage: UNK
     Dates: start: 20050505
  23. PLASMALYTE [GLUCOSE,POTASSIUM CHLORIDE] [Concomitant]
     Dosage: 2000 ML, UNK
     Route: 042
  24. BREVIBLOC [Concomitant]
     Dosage: 100 MG, UNK
     Route: 042
     Dates: start: 20050506, end: 20050506
  25. MILRINONE [Concomitant]
     Dosage: 0.5 MCG/ML, UNK
     Route: 042
     Dates: start: 20050506
  26. LIPITOR [Concomitant]
     Dosage: 10 MG, UNK
     Route: 048
  27. VERSED [Concomitant]
     Dosage: UNK
  28. TRASYLOL [Suspect]
     Indication: PHLEBECTOMY
     Dosage: 199 ML, ONCE
     Route: 042
     Dates: start: 20050506, end: 20050506
  29. AVALIDE [Concomitant]
     Route: 048
  30. LABETALOL HCL [Concomitant]
     Dosage: 20 MG, UNK
     Route: 042
     Dates: start: 20050505, end: 20050505
  31. LOPRESSOR [Concomitant]
     Dosage: 50 MG, UNK
     Route: 048
     Dates: start: 20050505
  32. PAPAVERINE [Concomitant]
     Dosage: 30 MG, UNK
     Route: 042
     Dates: start: 20050506, end: 20050506
  33. DOPAMINE [Concomitant]
     Dosage: UNK
     Route: 042
     Dates: start: 20050506, end: 20050506

REACTIONS (17)
  - MULTI-ORGAN FAILURE [None]
  - STRESS [None]
  - UNEVALUABLE EVENT [None]
  - RENAL FAILURE CHRONIC [None]
  - RENAL FAILURE [None]
  - ANHEDONIA [None]
  - RENAL IMPAIRMENT [None]
  - RENAL INJURY [None]
  - CEREBROVASCULAR ACCIDENT [None]
  - INJURY [None]
  - RESPIRATORY FAILURE [None]
  - CONTINUOUS HAEMODIAFILTRATION [None]
  - ANXIETY [None]
  - FEAR [None]
  - BRONCHIAL SECRETION RETENTION [None]
  - EMOTIONAL DISTRESS [None]
  - PAIN [None]
